FAERS Safety Report 8615258 (Version 2)
Quarter: 2013Q1

REPORT INFORMATION
  Report Type: Spontaneous
  Country: LB (occurrence: LB)
  Receive Date: 20120614
  Receipt Date: 20130124
  Transmission Date: 20140127
  Serious: Yes (Other)
  Sender: FDA-Public Use
  Company Number: LB-JNJFOC-20120604095

PATIENT
  Age: 27 Year
  Sex: Female
  Weight: 95 kg

DRUGS (6)
  1. RISPERDAL CONSTA [Suspect]
     Indication: SCHIZOPHRENIA
     Route: 030
     Dates: start: 201012
  2. RISPERDAL CONSTA [Suspect]
     Indication: SCHIZOPHRENIA
     Route: 030
  3. RISPERDAL CONSTA [Suspect]
     Indication: SCHIZOPHRENIA
     Route: 030
     Dates: end: 201208
  4. PROZAC [Suspect]
     Indication: DEPRESSION
     Route: 048
     Dates: start: 201101
  5. PROZAC [Suspect]
     Indication: DEPRESSION
     Route: 048
  6. PROZAC [Suspect]
     Indication: DEPRESSION
     Route: 048

REACTIONS (2)
  - Metabolic syndrome [Unknown]
  - Weight increased [Not Recovered/Not Resolved]
